FAERS Safety Report 20081713 (Version 2)
Quarter: 2021Q4

REPORT INFORMATION
  Report Type: Spontaneous
  Country: US (occurrence: US)
  Receive Date: 20211117
  Receipt Date: 20211225
  Transmission Date: 20220303
  Serious: No
  Sender: FDA-Public Use
  Company Number: US-JNJFOC-20211119552

PATIENT

DRUGS (1)
  1. TREMFYA [Suspect]
     Active Substance: GUSELKUMAB
     Indication: Product used for unknown indication
     Dosage: 100.00 MG/ML
     Route: 065

REACTIONS (1)
  - Drug ineffective [Unknown]

NARRATIVE: CASE EVENT DATE: 20211108
